FAERS Safety Report 5557420-1 (Version None)
Quarter: 2007Q4

REPORT INFORMATION
  Report Type: 
  Country: None (occurrence: None)
  Receive Date: 20071211
  Receipt Date: 20071127
  Transmission Date: 20080405
  Serious: Yes (Other)
  Sender: FDA-Public Use
  Company Number: 2007002315

PATIENT
  Age: 70 Year
  Sex: Female

DRUGS (3)
  1. TARCEVA [Suspect]
     Indication: LUNG ADENOCARCINOMA
     Dosage: 150 MG, QD, ORAL
     Route: 048
     Dates: start: 20070819
  2. MULTIVITAMIN NOS [Concomitant]
  3. PROZAC (FLUOXETINE HYDOCHLORIDE) [Concomitant]

REACTIONS (3)
  - ABASIA [None]
  - AMNESIA [None]
  - RASH [None]
